FAERS Safety Report 6209645-X (Version None)
Quarter: 2009Q2

REPORT INFORMATION
  Report Type: 
  Country: None (occurrence: None)
  Receive Date: 20090601
  Receipt Date: 20090415
  Transmission Date: 20091009
  Serious: Yes (Other)
  Sender: FDA-Public Use
  Company Number: JP-ASTRAZENECA-2009AC01169

PATIENT
  Age: 68 Year
  Sex: Female

DRUGS (5)
  1. MEROPEN [Suspect]
     Route: 042
     Dates: start: 20090401
  2. ALEVIATIN [Suspect]
     Dates: start: 20090301
  3. OLMETEC [Concomitant]
     Dates: start: 20090301
  4. AMLODIPINE [Concomitant]
     Dates: start: 20090301
  5. ARICEPT [Concomitant]
     Dates: start: 20090301

REACTIONS (1)
  - DRUG ERUPTION [None]
